FAERS Safety Report 7656741-6 (Version None)
Quarter: 2011Q3

REPORT INFORMATION
  Report Type: 
  Country: None (occurrence: None)
  Receive Date: 20110804
  Receipt Date: 20110720
  Transmission Date: 20111222
  Serious: Yes (Hospitalization)
  Sender: FDA-Public Use
  Company Number: JP-PFIZER INC-2011080385

PATIENT
  Age: 61 Year
  Sex: Male

DRUGS (3)
  1. TAXOTERE [Concomitant]
     Indication: PROSTATE CANCER
     Dosage: 40 MG, DAILY
     Route: 041
     Dates: start: 20101216
  2. ESTRACYT [Suspect]
     Indication: PROSTATE CANCER
     Dosage: 626.8 MG, DAILY
     Route: 048
     Dates: start: 20100827
  3. ESTRACYT [Suspect]
     Dosage: 313.4 MG, DAY
     Route: 048
     Dates: start: 20110218

REACTIONS (5)
  - DYSGEUSIA [None]
  - DECREASED APPETITE [None]
  - HEADACHE [None]
  - FEELING ABNORMAL [None]
  - MALAISE [None]
